FAERS Safety Report 14273375 (Version 1)
Quarter: 2017Q4

REPORT INFORMATION
  Report Type: Spontaneous
  Country: BR (occurrence: BR)
  Receive Date: 20171211
  Receipt Date: 20171211
  Transmission Date: 20180321
  Serious: Yes (Other)
  Sender: FDA-Public Use
  Company Number: BR-B.I. PHARMACEUTICALS,INC./RIDGEFIELD-2016-BI-22030BR

PATIENT
  Sex: Male
  Weight: 90 kg

DRUGS (1)
  1. TRAYENTA DUO [Suspect]
     Active Substance: LINAGLIPTIN\METFORMIN HYDROCHLORIDE
     Indication: TYPE 2 DIABETES MELLITUS
     Dosage: DOSE PER APPLICATION: 2.5/850 MG
     Route: 048
     Dates: start: 2015, end: 20160316

REACTIONS (2)
  - Platelet count decreased [Recovered/Resolved]
  - Hepatic cirrhosis [Not Recovered/Not Resolved]

NARRATIVE: CASE EVENT DATE: 20160316
